FAERS Safety Report 10515405 (Version 3)
Quarter: 2021Q3

REPORT INFORMATION
  Report Type: Spontaneous
  Country: DE (occurrence: DE)
  Receive Date: 20141014
  Receipt Date: 20210824
  Transmission Date: 20211014
  Serious: Yes (Congenital Anomaly, Other)
  Sender: FDA-Public Use
  Company Number: DE-AUROBINDO-AUR-APL-2014-10770

PATIENT
  Age: 1 Day
  Sex: Male
  Weight: 2.49 kg

DRUGS (11)
  1. AMOXICILLIN. [Concomitant]
     Active Substance: AMOXICILLIN
     Indication: PRODUCT USED FOR UNKNOWN INDICATION
     Dosage: 2000 MG, ONCE A DAY
     Route: 064
  2. PYRIDOXINE [Concomitant]
     Active Substance: PYRIDOXINE
     Indication: PRODUCT USED FOR UNKNOWN INDICATION
     Dosage: FROM 4TH GESTATIONAL MONTH, FOR ABOUT 3 WEEKS
     Route: 064
  3. CITALOPRAM [Suspect]
     Active Substance: CITALOPRAM HYDROBROMIDE
     Indication: PRODUCT USED FOR UNKNOWN INDICATION
     Dosage: 2.5 MG, ONCE A DAY
     Route: 064
  4. CEFUROXIM [Concomitant]
     Active Substance: CEFUROXIME
     Indication: PRODUCT USED FOR UNKNOWN INDICATION
     Dosage: FOR 5 DAYS AFTER AMOXI MEDICATION, DOSE UNKNOWN
     Route: 064
  5. DIMENHYDRINATE. [Concomitant]
     Active Substance: DIMENHYDRINATE
     Indication: PRODUCT USED FOR UNKNOWN INDICATION
     Dosage: UNK
     Route: 064
  6. PARACETAMOL [Concomitant]
     Active Substance: ACETAMINOPHEN
     Indication: PRODUCT USED FOR UNKNOWN INDICATION
     Dosage: UNK, TAKEN TOTALLY 4 TIMES DURING PREGNANCY
     Route: 064
  7. VITAMIN B6 [Concomitant]
     Active Substance: PYRIDOXINE HYDROCHLORIDE
     Indication: PRODUCT USED FOR UNKNOWN INDICATION
     Dosage: UNK, FROM 4TH GESTATIONAL MONTH, FOR ABOUT 3 WEEKS
     Route: 064
  8. TRAMADOLOR [Suspect]
     Active Substance: TRAMADOL
     Indication: PRODUCT USED FOR UNKNOWN INDICATION
     Dosage: 100 MG, TWO TIMES A DAY, UNTIL ONE WEEK BEFORE DELIVERY
     Route: 064
  9. VOMACUR [Concomitant]
     Active Substance: DIMENHYDRINATE
     Indication: PRODUCT USED FOR UNKNOWN INDICATION
     Dosage: 50 MG, ONCE A DAY
     Route: 064
  10. FOLIC ACID. [Concomitant]
     Active Substance: FOLIC ACID
     Indication: PRODUCT USED FOR UNKNOWN INDICATION
     Dosage: UNK
     Route: 064
  11. FEMIBION [Concomitant]
     Indication: PRODUCT USED FOR UNKNOWN INDICATION
     Dosage: UNK
     Route: 064

REACTIONS (7)
  - Congenital anomaly [Unknown]
  - Low birth weight baby [Unknown]
  - Small for dates baby [Unknown]
  - Foetal heart rate deceleration abnormality [Unknown]
  - Foetal exposure during pregnancy [Unknown]
  - Congenital hand malformation [Unknown]
  - Syndactyly [Unknown]

NARRATIVE: CASE EVENT DATE: 20130806
